APPROVED DRUG PRODUCT: SAFINAMIDE MESYLATE
Active Ingredient: SAFINAMIDE MESYLATE
Strength: EQ 100MG BASE
Dosage Form/Route: TABLET;ORAL
Application: A215902 | Product #002
Applicant: AUROBINDO PHARMA LTD
Approved: Jun 14, 2023 | RLD: No | RS: No | Type: DISCN